FAERS Safety Report 25245709 (Version 1)
Quarter: 2025Q2

REPORT INFORMATION
  Report Type: Spontaneous
  Country: US (occurrence: None)
  Receive Date: 20250427
  Receipt Date: 20250427
  Transmission Date: 20250717
  Serious: Yes (Other)
  Sender: FDA-CTU
  Company Number: None

PATIENT
  Age: 28 Year
  Sex: Female
  Weight: 108 kg

DRUGS (2)
  1. MONISTAT 7 [Suspect]
     Active Substance: MICONAZOLE NITRATE
     Indication: Fungal infection
     Dosage: OTHER QUANTITY : 1 SUPPOSITORY(IES);?FREQUENCY : AT BEDTIME;?
     Route: 067
     Dates: start: 20250414, end: 20250420
  2. Prenatal po [Concomitant]

REACTIONS (3)
  - Vaginal haemorrhage [None]
  - Vaginal disorder [None]
  - Exposure during pregnancy [None]

NARRATIVE: CASE EVENT DATE: 20250418
